FAERS Safety Report 9041106 (Version 1)
Quarter: 2013Q1

REPORT INFORMATION
  Report Type: Spontaneous
  Country: US (occurrence: None)
  Receive Date: 20130124
  Receipt Date: 20130124
  Transmission Date: 20140127
  Serious: No
  Sender: FDA-Public Use
  Company Number: None

PATIENT
  Sex: Female
  Weight: 68.04 kg

DRUGS (1)
  1. SORIATANE [Suspect]
     Indication: PSORIASIS
     Dosage: 25 MG  1 A DAY - FIRST MO. , 1 EVERY OTHER DAY 2ND MO.
     Dates: start: 20020921

REACTIONS (3)
  - Alopecia [None]
  - Skin exfoliation [None]
  - Chapped lips [None]
